FAERS Safety Report 7685281-3 (Version None)
Quarter: 2011Q3

REPORT INFORMATION
  Report Type: 
  Country: None (occurrence: None)
  Receive Date: 20110811
  Receipt Date: 20110728
  Transmission Date: 20111222
  Serious: Yes (Hospitalization)
  Sender: FDA-Public Use
  Company Number: 2011AP001622

PATIENT
  Age: 80 Year
  Sex: Female

DRUGS (10)
  1. AMITRIPTYLINE HCL [Concomitant]
  2. PROPRANOLOL [Concomitant]
  3. ZOPICLONE (ZOPICLONE) [Concomitant]
  4. CALCIUM CARBONATE [Concomitant]
  5. ALENDRONATE SODIUM [Suspect]
     Indication: PRODUCT USED FOR UNKNOWN INDICATION
     Dosage: 70 MG, QW, PO
     Route: 048
     Dates: end: 20110511
  6. COLECALCIFEROL (COLECALCIFEROL) [Concomitant]
  7. OMEPRAZOLE [Concomitant]
  8. ASPIRIN [Concomitant]
  9. SIMVASTATIN [Concomitant]
  10. TOLTERODINE TARTRATE [Concomitant]

REACTIONS (3)
  - OSTEONECROSIS OF JAW [None]
  - ABSCESS JAW [None]
  - OESOPHAGEAL STENOSIS [None]
